FAERS Safety Report 6704341-4 (Version None)
Quarter: 2010Q2

REPORT INFORMATION
  Report Type: 
  Country: None (occurrence: None)
  Receive Date: 20100423
  Receipt Date: 20100201
  Transmission Date: 20101027
  Serious: No
  Sender: FDA-Public Use
  Company Number: ALL1-2010-00528

PATIENT
  Age: 11 Year
  Sex: Male
  Weight: 72.6 kg

DRUGS (2)
  1. VYVANSE [Suspect]
     Indication: ATTENTION DEFICIT/HYPERACTIVITY DISORDER
     Dosage: 20 MG, 1X/DAY:QD,ORAL; 60 MG,1X/DAY:QD,ORAL
     Route: 048
  2. ALBUTEROL [Concomitant]

REACTIONS (1)
  - ACUTE SINUSITIS [None]
